FAERS Safety Report 5643762-8 (Version None)
Quarter: 2008Q1

REPORT INFORMATION
  Report Type: 
  Country: None (occurrence: None)
  Receive Date: 20080228
  Receipt Date: 20080220
  Transmission Date: 20080703
  Serious: Yes (Hospitalization)
  Sender: FDA-Public Use
  Company Number: US-GENENTECH-256405

PATIENT
  Age: 53 Year
  Sex: Female

DRUGS (3)
  1. BEVACIZUMAB [Suspect]
     Indication: GLIOMA
     Dosage: UNK, UNKNOWN
     Route: 065
  2. ENZASTAURIN [Suspect]
     Indication: GLIOMA
     Dosage: UNK, UNKNOWN
     Route: 065
  3. DEXAMETHASONE TAB [Concomitant]
     Indication: DRUG USE FOR UNKNOWN INDICATION
     Dosage: 24 MG, UNK

REACTIONS (1)
  - BLOOD AMYLASE INCREASED [None]
